FAERS Safety Report 6086698-3 (Version None)
Quarter: 2009Q1

REPORT INFORMATION
  Report Type: 
  Country: None (occurrence: None)
  Receive Date: 20090217
  Receipt Date: 20090202
  Transmission Date: 20090719
  Serious: Yes (Death)
  Sender: FDA-Public Use
  Company Number: CHPA2009US01677

PATIENT
  Age: 3 Month
  Sex: Male

DRUGS (1)
  1. DEXTROMETHORPHAN HYDROBROMIDE (NCH) (DEXTROMETHORPHAN HYDROBROMIDE) [Suspect]

REACTIONS (2)
  - CARDIAC ARREST [None]
  - RESPIRATORY ARREST [None]
